FAERS Safety Report 5284280-9 (Version None)
Quarter: 2007Q1

REPORT INFORMATION
  Report Type: 
  Country: None (occurrence: None)
  Receive Date: 20070314
  Receipt Date: 20070303
  Transmission Date: 20070707
  Serious: Yes (Other)
  Sender: FDA-Public Use
  Company Number: THYM-11343

PATIENT
  Age: 30 Year
  Sex: Female
  Weight: 93 kg

DRUGS (16)
  1. THYMOGLOBULIN [Suspect]
     Indication: RENAL TRANSPLANT
     Dosage: 140 MG QD IV
     Route: 042
     Dates: start: 20070302, end: 20070302
  2. THYMOGLOBULIN [Suspect]
     Indication: RENAL TRANSPLANT
     Dates: start: 20070301
  3. DEXAMETHASONE [Concomitant]
  4. CEFAZOLIN [Concomitant]
  5. BASILIXIMAB [Concomitant]
  6. MYCOPHENOLATE MOFETIL [Concomitant]
  7. PANTOPRAZOLE [Concomitant]
  8. METOPROLOL SUCCINATE [Concomitant]
  9. CALCIUM GLUCONATE [Concomitant]
  10. VALGANCICLOVIR HCL [Concomitant]
  11. GABAPENTIN [Concomitant]
  12. ASPIRIN [Concomitant]
  13. CHOLECCALCIFEROL [Concomitant]
  14. ATOMOXETINE [Concomitant]
  15. DARBEPOETIN [Concomitant]
  16. REGULAR INSULIN [Concomitant]

REACTIONS (5)
  - BODY TEMPERATURE INCREASED [None]
  - CHILLS [None]
  - HEART RATE INCREASED [None]
  - OXYGEN SATURATION DECREASED [None]
  - RESPIRATORY RATE INCREASED [None]
